FAERS Safety Report 11179305 (Version 1)
Quarter: 2015Q2

REPORT INFORMATION
  Report Type: Spontaneous
  Country: US (occurrence: US)
  Receive Date: 20150610
  Receipt Date: 20150610
  Transmission Date: 20150821
  Serious: No
  Sender: FDA-Public Use
  Company Number: US-009507513-1505USA007410

PATIENT
  Age: 16 Year
  Sex: Female
  Weight: 95.69 kg

DRUGS (2)
  1. NAPROXEN. [Concomitant]
     Active Substance: NAPROXEN
  2. NEXPLANON [Suspect]
     Active Substance: ETONOGESTREL
     Indication: CONTRACEPTION
     Dosage: 1 ROD/3 YEARS
     Route: 059
     Dates: start: 20141114, end: 20150413

REACTIONS (4)
  - Device breakage [Recovered/Resolved]
  - Implant site pruritus [Unknown]
  - Implant site mass [Unknown]
  - Weight increased [Unknown]

NARRATIVE: CASE EVENT DATE: 20141114
